FAERS Safety Report 16977877 (Version 5)
Quarter: 2019Q4

REPORT INFORMATION
  Report Type: Spontaneous
  Country: US (occurrence: US)
  Receive Date: 20191031
  Receipt Date: 20191218
  Transmission Date: 20200122
  Serious: Yes (Death, Hospitalization, Other)
  Sender: FDA-Public Use
  Company Number: US-KARYOPHARM THERAPEUTICS, INC.-2019KPT000757

PATIENT

DRUGS (1)
  1. XPOVIO [Suspect]
     Active Substance: SELINEXOR
     Indication: PLASMA CELL MYELOMA
     Dosage: 60 MG, WEEKLY
     Route: 048
     Dates: start: 20191021

REACTIONS (12)
  - Cancer pain [Unknown]
  - Fatigue [Unknown]
  - Death [Fatal]
  - Vision blurred [Unknown]
  - Vomiting [Recovered/Resolved]
  - Renal function test abnormal [Unknown]
  - Nausea [Recovered/Resolved]
  - Seizure [Unknown]
  - Hypercalcaemia [Unknown]
  - Thrombocytopenia [Unknown]
  - Fall [Unknown]
  - Hyponatraemia [Unknown]

NARRATIVE: CASE EVENT DATE: 20191022
